FAERS Safety Report 10610364 (Version 2)
Quarter: 2014Q4

REPORT INFORMATION
  Report Type: Spontaneous
  Country: US (occurrence: US)
  Receive Date: 20141126
  Receipt Date: 20141126
  Transmission Date: 20150529
  Serious: Yes (Hospitalization)
  Sender: FDA-Public Use
  Company Number: US-MALLINCKRODT-T201402018

PATIENT
  Sex: Male

DRUGS (1)
  1. GABLOFEN [Suspect]
     Active Substance: BACLOFEN
     Indication: MUSCLE SPASTICITY
     Dosage: 1180 MCG/DAY
     Route: 037

REACTIONS (2)
  - Meningitis [Recovered/Resolved]
  - Shunt infection [Recovered/Resolved]

NARRATIVE: CASE EVENT DATE: 2014
